FAERS Safety Report 21896746 (Version 1)
Quarter: 2023Q1

REPORT INFORMATION
  Report Type: Spontaneous
  Country: US (occurrence: US)
  Receive Date: 20230123
  Receipt Date: 20230123
  Transmission Date: 20230417
  Serious: Yes (Other)
  Sender: FDA-Public Use
  Company Number: US-MLMSERVICE-20230109-4031526-1

PATIENT

DRUGS (17)
  1. CLOMIPRAMINE [Suspect]
     Active Substance: CLOMIPRAMINE
     Indication: Obsessive-compulsive disorder
     Dosage: 75 MG, QD, AT BED TIME
     Route: 065
  2. CLOMIPRAMINE [Suspect]
     Active Substance: CLOMIPRAMINE
     Dosage: 25 MG, QD, AT BED TIME
     Route: 065
  3. ESCITALOPRAM [Suspect]
     Active Substance: ESCITALOPRAM OXALATE
     Indication: Product used for unknown indication
     Dosage: 10 MG, QD
     Route: 065
  4. CLOZAPINE [Suspect]
     Active Substance: CLOZAPINE
     Indication: Psychotic disorder
     Dosage: 25 MG
     Route: 065
  5. CLOZAPINE [Suspect]
     Active Substance: CLOZAPINE
     Dosage: 75 MG, 25 MG INCREMENTS TO 100 MG
     Route: 065
  6. CLOZAPINE [Suspect]
     Active Substance: CLOZAPINE
     Dosage: 100 MG, 25 MG INCREMENTS TO 100 MG
     Route: 065
  7. CLOZAPINE [Suspect]
     Active Substance: CLOZAPINE
     Dosage: 50 MG, 25 MG INCREMENTS TO 100 MG
     Route: 065
  8. GUANFACINE [Concomitant]
     Active Substance: GUANFACINE
     Indication: Product used for unknown indication
     Dosage: 1 MG, QD
     Route: 065
  9. ARIPIPRAZOLE [Concomitant]
     Active Substance: ARIPIPRAZOLE
     Indication: Hallucination, auditory
     Dosage: 15 MG, QD
  10. LORAZEPAM [Concomitant]
     Active Substance: LORAZEPAM
     Indication: Product used for unknown indication
     Dosage: UNK
     Route: 030
  11. CHLORPROMAZINE [Concomitant]
     Active Substance: CHLORPROMAZINE
     Indication: Product used for unknown indication
     Dosage: UNK
     Route: 048
  12. LITHIUM [Concomitant]
     Active Substance: LITHIUM
     Indication: Product used for unknown indication
     Dosage: 900 MG, QD, EXTENDED RELEASE - AT BED TIME
     Route: 065
  13. LITHIUM [Concomitant]
     Active Substance: LITHIUM
     Dosage: 900 MG, QD, EXTENDED RELEASE - AT BED TIME
     Route: 065
  14. LITHIUM [Concomitant]
     Active Substance: LITHIUM
     Dosage: 450 MG, QD, EXTENDED RELEASE - AT BED TIME
     Route: 065
  15. LITHIUM [Concomitant]
     Active Substance: LITHIUM
     Dosage: 450 MG, QD, EXTENDED RELEASE - AT BED TIME
     Route: 065
  16. HYDROXYZINE [Concomitant]
     Active Substance: HYDROXYZINE HYDROCHLORIDE
     Indication: Product used for unknown indication
     Dosage: UNK
     Route: 030
  17. METFORMIN [Concomitant]
     Active Substance: METFORMIN HYDROCHLORIDE
     Indication: Product used for unknown indication
     Dosage: 500 MG, BID, IN 12 HRS
     Route: 065

REACTIONS (5)
  - Mania [Unknown]
  - Gastrointestinal hypomotility [Recovered/Resolved]
  - Constipation [Recovered/Resolved]
  - Somnolence [Unknown]
  - Off label use [Unknown]
